FAERS Safety Report 9967659 (Version 1)
Quarter: 2014Q1

REPORT INFORMATION
  Report Type: Report from Study
  Country: US (occurrence: US)
  Receive Date: 20140306
  Receipt Date: 20140306
  Transmission Date: 20141002
  Serious: Yes (Other)
  Sender: FDA-Public Use
  Company Number: US-ROCHE-1339260

PATIENT
  Sex: Male

DRUGS (10)
  1. LUCENTIS [Suspect]
     Indication: AGE-RELATED MACULAR DEGENERATION
     Route: 050
  2. AVASTIN [Suspect]
     Indication: PRODUCT USED FOR UNKNOWN INDICATION
     Route: 047
     Dates: start: 20110520
  3. BLUE CAP [Concomitant]
     Dosage: OS BID
     Route: 047
  4. PRED FORTE [Concomitant]
     Dosage: OS BID
     Route: 047
  5. TIMOLOL [Concomitant]
     Dosage: QHS OU
     Route: 047
  6. TIMOLOL [Concomitant]
     Dosage: BID OU
     Route: 047
  7. LOTEMAX [Concomitant]
     Dosage: BID OU
     Route: 047
  8. NEOPOLYDEX [Concomitant]
     Route: 047
  9. BETADINE [Concomitant]
     Route: 047
  10. LUTEIN [Concomitant]
     Route: 047

REACTIONS (8)
  - Eye irritation [Unknown]
  - Visual acuity reduced [Unknown]
  - Visual impairment [Unknown]
  - Photophobia [Unknown]
  - Dry eye [Unknown]
  - Eye disorder [Unknown]
  - Visual acuity reduced transiently [Unknown]
  - Incorrect dose administered [Unknown]
